FAERS Safety Report 12923933 (Version 1)
Quarter: 2016Q4

REPORT INFORMATION
  Report Type: Spontaneous
  Country: US (occurrence: US)
  Receive Date: 20161109
  Receipt Date: 20161109
  Transmission Date: 20170207
  Serious: Yes (Death)
  Sender: FDA-Public Use
  Company Number: None

PATIENT
  Age: 46 Year
  Sex: Female
  Weight: 94.4 kg

DRUGS (27)
  1. CYCLOBENZAPRINE [Concomitant]
     Active Substance: CYCLOBENZAPRINE
  2. METHADONE [Concomitant]
     Active Substance: METHADONE HYDROCHLORIDE
  3. GUANFACINE. [Concomitant]
     Active Substance: GUANFACINE
  4. NICOTINE POLACRILEX [Concomitant]
     Active Substance: NICOTINE
  5. ONDANSETRON [Concomitant]
     Active Substance: ONDANSETRON
  6. SENOKOT [Concomitant]
     Active Substance: SENNOSIDES
  7. ACETAMINOPHEN. [Concomitant]
     Active Substance: ACETAMINOPHEN
  8. GABAPENTIN. [Concomitant]
     Active Substance: GABAPENTIN
  9. HYDROCHLOROTHIAZIDE. [Concomitant]
     Active Substance: HYDROCHLOROTHIAZIDE
  10. HYDROXYZINE [Concomitant]
     Active Substance: HYDROXYZINE\HYDROXYZINE HYDROCHLORIDE
  11. VOLTAREN [Concomitant]
     Active Substance: DICLOFENAC SODIUM
  12. CHANTIX [Suspect]
     Active Substance: VARENICLINE TARTRATE
     Indication: TOBACCO USER
     Route: 048
     Dates: start: 20161019, end: 20161023
  13. CYANOCOBALAMIN. [Concomitant]
     Active Substance: CYANOCOBALAMIN
  14. CLONIDINE. [Concomitant]
     Active Substance: CLONIDINE
  15. DULOXETINE. [Concomitant]
     Active Substance: DULOXETINE
  16. FENTANYL. [Concomitant]
     Active Substance: FENTANYL
  17. POLYETHYLENE GLYCOL [Concomitant]
     Active Substance: POLYETHYLENE GLYCOLS
  18. PROPRANOLOL [Concomitant]
     Active Substance: PROPRANOLOL\PROPRANOLOL HYDROCHLORIDE
  19. OXYCODONE [Concomitant]
     Active Substance: OXYCODONE
  20. TRIAMCINOLONE CREAM [Concomitant]
     Active Substance: TRIAMCINOLONE
  21. ALENDRONATE [Concomitant]
     Active Substance: ALENDRONATE SODIUM
  22. ARIPIPRAZOLE. [Concomitant]
     Active Substance: ARIPIPRAZOLE
  23. CHOLECALCIFEROL [Concomitant]
     Active Substance: CHOLECALCIFEROL
  24. VITAMIN B COMPLEX [Concomitant]
     Active Substance: CYANOCOBALAMIN\DEXPANTHENOL\NIACINAMIDE\PYRIDOXINE HYDROCHLORIDE\RIBOFLAVIN 5^-PHOSPHATE SODIUM\THIAMINE HYDROCHLORIDE\VITAMIN B COMPLEX
  25. LIDOCAINE JELLY [Concomitant]
     Active Substance: LIDOCAINE
  26. LISINOPRIL. [Concomitant]
     Active Substance: LISINOPRIL
  27. QUETIAPINE. [Concomitant]
     Active Substance: QUETIAPINE

REACTIONS (8)
  - Cardiac arrest [None]
  - Accidental overdose [None]
  - Pulse absent [None]
  - Pulmonary embolism [None]
  - Unresponsive to stimuli [None]
  - Respiratory arrest [None]
  - Pulse abnormal [None]
  - Cardiomegaly [None]

NARRATIVE: CASE EVENT DATE: 20161023
